FAERS Safety Report 14665091 (Version 1)
Quarter: 2018Q1

REPORT INFORMATION
  Report Type: Spontaneous
  Country: US (occurrence: US)
  Receive Date: 20180321
  Receipt Date: 20180321
  Transmission Date: 20180509
  Serious: Yes (Life-Threatening, Hospitalization, Other)
  Sender: FDA-Public Use
  Company Number: US-SA-2018SA079220

PATIENT
  Age: 76 Year
  Sex: Female

DRUGS (6)
  1. CARVEDILOL. [Concomitant]
     Active Substance: CARVEDILOL
     Indication: CARDIAC FAILURE
  2. LIDOCAINE HYDROCHLORIDE. [Suspect]
     Active Substance: LIDOCAINE HYDROCHLORIDE
     Route: 061
  3. WARFARIN [Concomitant]
     Active Substance: WARFARIN
     Indication: CARDIAC FAILURE
  4. ENOXAPARIN [Concomitant]
     Active Substance: ENOXAPARIN
     Indication: CARDIAC FAILURE
  5. FUROSEMIDE. [Concomitant]
     Active Substance: FUROSEMIDE
     Indication: CARDIAC FAILURE
     Route: 042
  6. LIDOCAINE HYDROCHLORIDE. [Suspect]
     Active Substance: LIDOCAINE HYDROCHLORIDE
     Dosage: DOSES OF 25 TO 30 ML 4% TOPICAL LIDOCAINE
     Route: 061

REACTIONS (14)
  - Toxicity to various agents [Recovered/Resolved]
  - Respiratory failure [Recovered/Resolved]
  - Renal tubular necrosis [Recovered/Resolved]
  - Cardiac arrest [Recovered/Resolved]
  - Heart rate decreased [Recovered/Resolved]
  - Mydriasis [Recovered/Resolved]
  - Acute kidney injury [Recovered/Resolved]
  - Unresponsive to stimuli [Recovered/Resolved]
  - Pulse absent [Recovered/Resolved]
  - Dysarthria [Recovered/Resolved]
  - Hypoxia [Recovered/Resolved]
  - Bradycardia [Recovered/Resolved]
  - Confusional state [Recovered/Resolved]
  - Hypotension [Recovered/Resolved]
